FAERS Safety Report 5816958-X (Version None)
Quarter: 2008Q3

REPORT INFORMATION
  Report Type: 
  Country: None (occurrence: None)
  Receive Date: 20080722
  Receipt Date: 20080714
  Transmission Date: 20090109
  Serious: Yes (Other)
  Sender: FDA-Public Use
  Company Number: PHHY2008BR14317

PATIENT
  Age: 29 Year
  Sex: Female
  Weight: 73 kg

DRUGS (2)
  1. PARLODEL [Suspect]
     Indication: BREAST DYSPLASIA
     Dosage: 1 CAPSULE A DAY
     Route: 048
     Dates: start: 20010202
  2. DEPO-PROVERA [Concomitant]

REACTIONS (1)
  - WEIGHT INCREASED [None]
